FAERS Safety Report 10975688 (Version 1)
Quarter: 2015Q2

REPORT INFORMATION
  Report Type: Spontaneous
  Country: AU (occurrence: AU)
  Receive Date: 20150401
  Receipt Date: 20150401
  Transmission Date: 20150821
  Serious: Yes (Hospitalization)
  Sender: FDA-Public Use
  Company Number: AU-BAYER-2015-075322

PATIENT

DRUGS (7)
  1. METFORMIN [Suspect]
     Active Substance: METFORMIN HYDROCHLORIDE
  2. MELOXICAM. [Suspect]
     Active Substance: MELOXICAM
  3. METOPROLOL [Suspect]
     Active Substance: METOPROLOL
  4. CODEINE W/PARACETAMOL [Suspect]
     Active Substance: ACETAMINOPHEN\CODEINE PHOSPHATE
  5. PARACETAMOL [Suspect]
     Active Substance: ACETAMINOPHEN
  6. ATORVASTATIN [Suspect]
     Active Substance: ATORVASTATIN
  7. ASPRO [Suspect]
     Active Substance: ASPIRIN\SODIUM BICARBONATE

REACTIONS (1)
  - Drug-induced liver injury [None]
